FAERS Safety Report 9135690 (Version 2)
Quarter: 2013Q3

REPORT INFORMATION
  Report Type: Spontaneous
  Country: DE (occurrence: CA)
  Receive Date: 20130304
  Receipt Date: 20130715
  Transmission Date: 20140515
  Serious: Yes (Hospitalization)
  Sender: FDA-Public Use
  Company Number: CA-FRI-1000043035

PATIENT
  Age: 75 Year
  Sex: Male

DRUGS (4)
  1. ROFLUMILAST [Suspect]
     Indication: CHRONIC OBSTRUCTIVE PULMONARY DISEASE
     Dosage: 500 MCG
     Route: 048
     Dates: start: 20120412, end: 201208
  2. ADVAIR [Concomitant]
     Dosage: 500 MG
  3. SPIRIVA [Concomitant]
     Dosage: 1 PUFF
  4. SALBUTAMOL [Concomitant]

REACTIONS (2)
  - Pulmonary bulla [Recovered/Resolved]
  - Drug ineffective [Unknown]
